FAERS Safety Report 8070296-6 (Version None)
Quarter: 2012Q1

REPORT INFORMATION
  Report Type: 
  Country: None (occurrence: None)
  Receive Date: 20120118
  Receipt Date: 20120109
  Transmission Date: 20120608
  Serious: Yes (Death)
  Sender: FDA-Public Use
  Company Number: JPI-P-014824

PATIENT
  Sex: Female

DRUGS (2)
  1. XYREM [Suspect]
     Indication: PRODUCT USED FOR UNKNOWN INDICATION
     Dosage: 8 GM (4 GM, 2 IN 1 D), ORAL 10.5 GM (3.5 GM, 3 IN 1 D), ORAL
     Route: 048
     Dates: start: 20060220, end: 20060101
  2. XYREM [Suspect]
     Indication: PRODUCT USED FOR UNKNOWN INDICATION
     Dosage: 8 GM (4 GM, 2 IN 1 D), ORAL 10.5 GM (3.5 GM, 3 IN 1 D), ORAL
     Route: 048
     Dates: start: 20060317, end: 20060407

REACTIONS (2)
  - DROWNING [None]
  - HEPATITIS C [None]
